FAERS Safety Report 7405704-4 (Version None)
Quarter: 2011Q2

REPORT INFORMATION
  Report Type: 
  Country: None (occurrence: None)
  Receive Date: 20110411
  Receipt Date: 20110405
  Transmission Date: 20111010
  Serious: Yes (Other)
  Sender: FDA-Public Use
  Company Number: JP-ROCHE-766985

PATIENT
  Age: 60 Year
  Sex: Male

DRUGS (2)
  1. REBETOL [Suspect]
     Indication: HEPATITIS C
     Dosage: NOTE: DOSAGE IS UNCERTAIN.
     Route: 048
  2. PEG-INTRON [Suspect]
     Indication: HEPATITIS C
     Dosage: NOTE: DOSAGE IS UNCERTAIN.
     Route: 058

REACTIONS (2)
  - RETINAL ARTERY OCCLUSION [None]
  - RETINAL VEIN OCCLUSION [None]
